FAERS Safety Report 19779562 (Version 1)
Quarter: 2021Q3

REPORT INFORMATION
  Report Type: Spontaneous
  Country: US (occurrence: US)
  Receive Date: 20210902
  Receipt Date: 20210902
  Transmission Date: 20211014
  Serious: No
  Sender: FDA-Public Use
  Company Number: US-MYLANLABS-2021M1046917

PATIENT
  Sex: Male
  Weight: 102 kg

DRUGS (6)
  1. FENTANYL TRANSDERMAL SYSTEM [Suspect]
     Active Substance: FENTANYL
     Indication: NEURALGIA
     Dosage: WEAR ONE PATCH, CHANGE EVERY 48 HOURS
     Route: 062
  2. GABAPENTIN. [Concomitant]
     Active Substance: GABAPENTIN
     Dosage: 7 PILLS/DAY
  3. ELIQUIS [Concomitant]
     Active Substance: APIXABAN
     Dosage: 5 MILLIGRAM, QD
  4. TAMSULOSIN [Concomitant]
     Active Substance: TAMSULOSIN
     Dosage: 4 MILLIGRAM, BID
  5. FENTANYL TRANSDERMAL SYSTEM [Suspect]
     Active Substance: FENTANYL
     Indication: BACK PAIN
     Dosage: 25 MICROGRAM, QH (WEAR ONE PATCH, CHANGE EVERY 48 HOURS)
     Route: 062
  6. METOPROLOL. [Concomitant]
     Active Substance: METOPROLOL
     Dosage: 25 MILLIGRAM, QD

REACTIONS (3)
  - Wrong technique in product usage process [Unknown]
  - Product adhesion issue [Unknown]
  - Product substitution issue [Unknown]
